FAERS Safety Report 4663419-X (Version None)
Quarter: 2005Q2

REPORT INFORMATION
  Report Type: 
  Country: None (occurrence: None)
  Receive Date: 20050511
  Receipt Date: 20050131
  Transmission Date: 20051028
  Serious: Yes (Other)
  Sender: FDA-Public Use
  Company Number: 394360

PATIENT
  Age: 48 Year
  Sex: Male

DRUGS (2)
  1. PEGASYS [Suspect]
     Indication: HEPATITIS C
     Dosage: 90 MCG 1 PER WEEK; SUBCUTANEOUS
     Route: 058
     Dates: start: 20041214, end: 20050115
  2. COPEGUS [Suspect]
     Indication: HEPATITIS C
     Dosage: 200 MG DAILY; ORAL
     Route: 048
     Dates: start: 20051214, end: 20050115

REACTIONS (3)
  - CONDITION AGGRAVATED [None]
  - FATIGUE [None]
  - PLATELET COUNT DECREASED [None]
